FAERS Safety Report 5468785-3 (Version None)
Quarter: 2007Q3

REPORT INFORMATION
  Report Type: 
  Country: None (occurrence: None)
  Receive Date: 20070926
  Receipt Date: 20070914
  Transmission Date: 20080115
  Serious: Yes (Other)
  Sender: FDA-Public Use
  Company Number: US-PFIZER INC-2007077472

PATIENT
  Sex: Female
  Weight: 70.454 kg

DRUGS (8)
  1. CHANTIX [Suspect]
     Indication: SMOKING CESSATION THERAPY
  2. LIPITOR [Concomitant]
     Indication: BLOOD CHOLESTEROL INCREASED
  3. LYRICA [Concomitant]
  4. LEXAPRO [Concomitant]
     Indication: DEPRESSION
  5. MULTIPLE VITAMIN [Concomitant]
  6. SULFATRIM [Concomitant]
  7. CYSTOSPAZ [Concomitant]
     Dosage: FREQ:AS NEEDED
  8. CARISOPRODOL [Concomitant]

REACTIONS (3)
  - NERVOUSNESS [None]
  - PAIN [None]
  - ROTATOR CUFF REPAIR [None]
